FAERS Safety Report 17315565 (Version 2)
Quarter: 2020Q2

REPORT INFORMATION
  Report Type: Spontaneous
  Country: US (occurrence: US)
  Receive Date: 20200124
  Receipt Date: 20200511
  Transmission Date: 20200713
  Serious: Yes (Other)
  Sender: FDA-Public Use
  Company Number: US-009507513-2001USA006527

PATIENT
  Age: 50 Year
  Sex: Male

DRUGS (3)
  1. TEMODAR [Suspect]
     Active Substance: TEMOZOLOMIDE
     Dosage: 300 MILLIGRAM DAILY FOR 5 DAYS EVERY 28 DAYS
     Route: 048
     Dates: start: 20190419
  2. TEMODAR [Suspect]
     Active Substance: TEMOZOLOMIDE
     Dosage: 300 MILLIGRAM DAILY FOR 5 DAYS EVERY 28 DAYS
     Route: 048
     Dates: start: 20190418, end: 20190419
  3. TEMODAR [Suspect]
     Active Substance: TEMOZOLOMIDE
     Indication: BRAIN NEOPLASM
     Dosage: 300 MILLIGRAM DAILY FOR 5 DAYS EVERY 28 DAYS
     Route: 048
     Dates: start: 20130220, end: 2013

REACTIONS (3)
  - Malignant neoplasm progression [Unknown]
  - Product use in unapproved indication [Unknown]
  - Rash [Recovered/Resolved]

NARRATIVE: CASE EVENT DATE: 20130220
